FAERS Safety Report 6508778-8 (Version None)
Quarter: 2009Q4

REPORT INFORMATION
  Report Type: 
  Country: None (occurrence: None)
  Receive Date: 20091221
  Receipt Date: 20091212
  Transmission Date: 20100525
  Serious: Yes (Other)
  Sender: FDA-Public Use
  Company Number: US-ELI_LILLY_AND_COMPANY-US200911005575

PATIENT
  Sex: Male

DRUGS (7)
  1. CIALIS [Suspect]
     Indication: ERECTILE DYSFUNCTION
     Dosage: 20 MG, UNKNOWN
     Route: 065
     Dates: start: 20070808, end: 20091001
  2. LOVASTATIN [Concomitant]
     Dosage: UNK, UNKNOWN
     Route: 065
     Dates: start: 20071026
  3. ATENOLOL [Concomitant]
     Dosage: UNK, UNKNOWN
     Route: 065
     Dates: start: 20071219
  4. GABAPENTIN [Concomitant]
     Dosage: UNK, UNKNOWN
     Route: 065
     Dates: start: 20071022
  5. LISINOPRIL [Concomitant]
     Dosage: UNK, UNKNOWN
     Route: 065
     Dates: start: 20090928
  6. LUNESTA [Concomitant]
     Dosage: UNK, UNKNOWN
     Route: 065
     Dates: start: 20080204
  7. OMEPRAZOLE [Concomitant]
     Dosage: UNK, UNKNOWN
     Route: 065
     Dates: start: 20071205

REACTIONS (2)
  - BLINDNESS UNILATERAL [None]
  - VISION BLURRED [None]
